FAERS Safety Report 20850979 (Version 1)
Quarter: 2022Q2

REPORT INFORMATION
  Report Type: Spontaneous
  Country: None (occurrence: US)
  Receive Date: 20220519
  Receipt Date: 20220519
  Transmission Date: 20220720
  Serious: No
  Sender: FDA-Public Use
  Company Number: US-Ascent Pharmaceuticals, Inc.-2128971

PATIENT
  Age: 47 Year
  Sex: Female
  Weight: 90.909 kg

DRUGS (1)
  1. DEXTROAMPHET SACCHARAT, AMPHET ASPARTATE, DEXTROAMPHET SULFATE AND AMP [Suspect]
     Active Substance: AMPHETAMINE ASPARTATE\AMPHETAMINE SULFATE\DEXTROAMPHETAMINE SACCHARATE\DEXTROAMPHETAMINE SULFATE
     Indication: Attention deficit hyperactivity disorder
     Route: 048

REACTIONS (4)
  - Fatigue [Not Recovered/Not Resolved]
  - Yawning [Not Recovered/Not Resolved]
  - Product substitution issue [Unknown]
  - Disturbance in attention [Not Recovered/Not Resolved]
